FAERS Safety Report 24191292 (Version 3)
Quarter: 2024Q4

REPORT INFORMATION
  Report Type: Spontaneous
  Country: US (occurrence: US)
  Receive Date: 20240808
  Receipt Date: 20241108
  Transmission Date: 20250114
  Serious: No
  Sender: BRISTOL-MYERS SQUIBB COMPANY
  Company Number: US-BRISTOL-MYERS SQUIBB COMPANY-2024-125555

PATIENT
  Age: 87 Year
  Sex: Female
  Weight: 49.9 kg

DRUGS (1)
  1. REVLIMID [Suspect]
     Active Substance: LENALIDOMIDE
     Indication: Plasma cell myeloma
     Route: 048

REACTIONS (8)
  - Flatulence [Unknown]
  - Constipation [Unknown]
  - Faeces discoloured [Unknown]
  - Off label use [Unknown]
  - Feeling abnormal [Recovering/Resolving]
  - Pruritus [Recovering/Resolving]
  - Neoplasm skin [Recovering/Resolving]
  - Blister [Recovering/Resolving]
